FAERS Safety Report 5277589-6 (Version None)
Quarter: 2007Q1

REPORT INFORMATION
  Report Type: 
  Country: None (occurrence: None)
  Receive Date: 20070320
  Receipt Date: 20070309
  Transmission Date: 20070707
  Serious: Yes (Other)
  Sender: FDA-Public Use
  Company Number: CHPA2007US03622

PATIENT
  Age: 20 Year
  Sex: Female
  Weight: 63.5 kg

DRUGS (1)
  1. EXCEDRIN (MIGRAINE) [Suspect]
     Indication: HEADACHE
     Dosage: 2 DF, BID, ORAL
     Route: 048
     Dates: start: 20070308, end: 20070308

REACTIONS (5)
  - DIZZINESS [None]
  - MALAISE [None]
  - PARAESTHESIA [None]
  - PERIORBITAL HAEMATOMA [None]
  - VOMITING [None]
